FAERS Safety Report 4889371-X (Version None)
Quarter: 2006Q1

REPORT INFORMATION
  Report Type: 
  Country: None (occurrence: None)
  Receive Date: 20060120
  Receipt Date: 20060120
  Transmission Date: 20060701
  Serious: Yes (Life-Threatening)
  Sender: FDA-Public Use
  Company Number: None

PATIENT
  Age: 85 Year
  Sex: Female

DRUGS (1)
  1. ADENOSCAN [Suspect]
     Indication: CARDIAC STRESS TEST
     Dosage: 140 MCG/KG/MIN IV
     Route: 042
     Dates: start: 20051228

REACTIONS (1)
  - PHARMACEUTICAL PRODUCT COMPLAINT [None]
